FAERS Safety Report 9702767 (Version 1)
Quarter: 2013Q4

REPORT INFORMATION
  Report Type: Spontaneous
  Country: CA (occurrence: CA)
  Receive Date: 20131121
  Receipt Date: 20131121
  Transmission Date: 20140711
  Serious: Yes (Disabling)
  Sender: FDA-Public Use
  Company Number: CA-GLAXOSMITHKLINE-A1037921A

PATIENT
  Sex: Female

DRUGS (1)
  1. LAMICTAL [Suspect]
     Indication: ANXIETY
     Dosage: 25MG UNKNOWN
     Route: 065
     Dates: start: 201307, end: 20130914

REACTIONS (2)
  - Alopecia [Recovered/Resolved]
  - Self esteem decreased [Unknown]
